FAERS Safety Report 17022220 (Version 1)
Quarter: 2019Q4

REPORT INFORMATION
  Report Type: Spontaneous
  Country: US (occurrence: US)
  Receive Date: 20191112
  Receipt Date: 20191112
  Transmission Date: 20200122
  Serious: Yes (Other)
  Sender: FDA-Public Use
  Company Number: US-AMERICAN REGENT INC-2019002433

PATIENT
  Age: 24 Year
  Sex: Male
  Weight: 160 kg

DRUGS (12)
  1. GLUCAGON. [Suspect]
     Active Substance: GLUCAGON
     Indication: INTENTIONAL OVERDOSE
     Dosage: UNK
  2. FAT EMULSION NOS [Suspect]
     Active Substance: EGG PHOSPHOLIPIDS\SAFFLOWER OIL\SOYBEAN OIL
     Indication: INTENTIONAL OVERDOSE
     Dosage: UNK
     Route: 042
  3. ACTIVATED CHARCOAL. [Suspect]
     Active Substance: ACTIVATED CHARCOAL
     Indication: INTENTIONAL OVERDOSE
     Dosage: UNK
     Route: 065
  4. GLUCAGON. [Suspect]
     Active Substance: GLUCAGON
     Dosage: 8 MILLIGRAM/ HR
     Route: 042
  5. NOREPINEPHRINE. [Suspect]
     Active Substance: NOREPINEPHRINE
     Indication: BRADYCARDIA
     Dosage: 2.3 MICROGRAM/KILOGRAM/ MIN
     Route: 042
  6. EPINEPHRINE INJECTION, USP (0517-1071-01) [Suspect]
     Active Substance: EPINEPHRINE
     Indication: GENERAL PHYSICAL HEALTH DETERIORATION
     Dosage: 0.22 MICROGRAM/KILOGRAM/ MIN
     Route: 042
  7. DOPAMINE HCL INJECTION, USP (1305-25) [Suspect]
     Active Substance: DOPAMINE HYDROCHLORIDE
     Indication: BRADYCARDIA
  8. NOREPINEPHRINE. [Suspect]
     Active Substance: NOREPINEPHRINE
     Indication: HYPOTENSION
     Dosage: UNK
     Route: 042
  9. DOPAMINE HCL INJECTION, USP (1305-25) [Suspect]
     Active Substance: DOPAMINE HYDROCHLORIDE
     Indication: HYPOTENSION
     Dosage: UNK
     Route: 042
  10. METHYLENE BLUE INJECTION, USP [Suspect]
     Active Substance: METHYLENE BLUE
     Indication: GENERAL PHYSICAL HEALTH DETERIORATION
     Dosage: UNK
     Route: 065
  11. CALCIUM [Suspect]
     Active Substance: CALCIUM
     Indication: INTENTIONAL OVERDOSE
     Dosage: UNK
     Route: 042
  12. INSULIN [Suspect]
     Active Substance: INSULIN NOS
     Indication: INTENTIONAL OVERDOSE
     Dosage: 10 UNITS/KG/HR
     Route: 042

REACTIONS (2)
  - Product use in unapproved indication [Unknown]
  - Drug ineffective for unapproved indication [Unknown]
